FAERS Safety Report 7478053-6 (Version None)
Quarter: 2011Q2

REPORT INFORMATION
  Report Type: 
  Country: None (occurrence: None)
  Receive Date: 20110511
  Receipt Date: 20110511
  Transmission Date: 20111010
  Serious: Yes (Other)
  Sender: FDA-Public Use
  Company Number: None

PATIENT
  Age: 20 Year
  Sex: Female
  Weight: 68.0396 kg

DRUGS (2)
  1. CYMBALTA [Suspect]
     Indication: ANXIETY
     Dosage: 1 TAB 30 MG 1 TAB QHS PO
     Route: 048
     Dates: start: 20110425, end: 20110426
  2. LEXAPRO [Suspect]
     Indication: ANXIETY
     Dosage: 1/2 TAB 10 MG -5 MG- 1/2 TAB QHS PO
     Route: 048
     Dates: start: 20110225, end: 20110226

REACTIONS (1)
  - MYDRIASIS [None]
